FAERS Safety Report 12929082 (Version 2)
Quarter: 2016Q4

REPORT INFORMATION
  Report Type: Spontaneous
  Country: US (occurrence: US)
  Receive Date: 20161110
  Receipt Date: 20161222
  Transmission Date: 20170207
  Serious: Yes (Other)
  Sender: FDA-Public Use
  Company Number: US-009507513-1611USA004079

PATIENT
  Age: 66 Year
  Sex: Female
  Weight: 90.7 kg

DRUGS (2)
  1. PRINIVIL [Suspect]
     Active Substance: LISINOPRIL
     Indication: PRODUCT USED FOR UNKNOWN INDICATION
     Dosage: 10 MG, UNK
     Route: 048
     Dates: end: 20160919
  2. ZESTRIL [Interacting]
     Active Substance: LISINOPRIL
     Indication: PRODUCT USED FOR UNKNOWN INDICATION
     Dosage: 10 MG, UNK
     Route: 048

REACTIONS (27)
  - Drug interaction [Unknown]
  - Osteoarthritis [Unknown]
  - Renal cyst [Unknown]
  - Gastrooesophageal reflux disease [Unknown]
  - Anaemia [Unknown]
  - Arrhythmia [Unknown]
  - Cataract operation [Unknown]
  - Pulmonary hypertension [Unknown]
  - Aortic valve incompetence [Unknown]
  - Asthma [Unknown]
  - Depression [Recovered/Resolved]
  - Dental implantation [Unknown]
  - Hyperlipidaemia [Unknown]
  - Carpal tunnel decompression [Unknown]
  - Tricuspid valve incompetence [Unknown]
  - Atrial fibrillation [Unknown]
  - Mitral valve incompetence [Unknown]
  - Chest pain [Recovered/Resolved]
  - Haematuria [Unknown]
  - Rotator cuff repair [Unknown]
  - Hernia repair [Unknown]
  - Oedema peripheral [Recovering/Resolving]
  - Type 2 diabetes mellitus [Unknown]
  - Aortic valve sclerosis [Unknown]
  - Myocardial infarction [Unknown]
  - Essential hypertension [Unknown]
  - Tonsillectomy [Unknown]

NARRATIVE: CASE EVENT DATE: 20100524
